FAERS Safety Report 13363779 (Version 2)
Quarter: 2017Q2

REPORT INFORMATION
  Report Type: Spontaneous
  Country: GB (occurrence: GB)
  Receive Date: 20170323
  Receipt Date: 20170414
  Transmission Date: 20170830
  Serious: Yes (Hospitalization, Other)
  Sender: FDA-Public Use
  Company Number: GB-SAOL THERAPEUTICS-2017SAO00518

PATIENT
  Sex: Male

DRUGS (3)
  1. MORPHINE [Suspect]
     Active Substance: MORPHINE
  2. MORPHINE [Suspect]
     Active Substance: MORPHINE
     Route: 037
  3. BACLOFEN. [Suspect]
     Active Substance: BACLOFEN
     Route: 037

REACTIONS (3)
  - Cerebral haemorrhage [Not Recovered/Not Resolved]
  - Overdose [Not Recovered/Not Resolved]
  - Autonomic dysreflexia [Not Recovered/Not Resolved]

NARRATIVE: CASE EVENT DATE: 2016
